FAERS Safety Report 25199804 (Version 1)
Quarter: 2025Q2

REPORT INFORMATION
  Report Type: Spontaneous
  Country: FR (occurrence: FR)
  Receive Date: 20250415
  Receipt Date: 20250415
  Transmission Date: 20250716
  Serious: Yes (Hospitalization)
  Sender: MYLAN
  Company Number: None

PATIENT
  Age: 93 Year
  Sex: Female
  Weight: 56 kg

DRUGS (36)
  1. AMLODIPINE [Suspect]
     Active Substance: AMLODIPINE BESYLATE
     Indication: Hypertension
     Dosage: 10 MILLIGRAM, QD
     Dates: start: 20250215
  2. AMLODIPINE [Suspect]
     Active Substance: AMLODIPINE BESYLATE
     Dosage: 10 MILLIGRAM, QD
     Route: 048
     Dates: start: 20250215
  3. AMLODIPINE [Suspect]
     Active Substance: AMLODIPINE BESYLATE
     Dosage: 10 MILLIGRAM, QD
     Route: 048
     Dates: start: 20250215
  4. AMLODIPINE [Suspect]
     Active Substance: AMLODIPINE BESYLATE
     Dosage: 10 MILLIGRAM, QD
     Dates: start: 20250215
  5. AMOXICILLIN [Suspect]
     Active Substance: AMOXICILLIN
     Indication: Pyelonephritis acute
     Dosage: 3 GRAM, QD
     Dates: start: 20250224, end: 20250226
  6. AMOXICILLIN [Suspect]
     Active Substance: AMOXICILLIN
     Dosage: 3 GRAM, QD
     Route: 048
     Dates: start: 20250224, end: 20250226
  7. AMOXICILLIN [Suspect]
     Active Substance: AMOXICILLIN
     Dosage: 3 GRAM, QD
     Route: 048
     Dates: start: 20250224, end: 20250226
  8. AMOXICILLIN [Suspect]
     Active Substance: AMOXICILLIN
     Dosage: 3 GRAM, QD
     Dates: start: 20250224, end: 20250226
  9. MELATONIN [Suspect]
     Active Substance: MELATONIN
     Indication: Insomnia
     Dates: start: 20250312, end: 20250315
  10. MELATONIN [Suspect]
     Active Substance: MELATONIN
     Route: 048
     Dates: start: 20250312, end: 20250315
  11. MELATONIN [Suspect]
     Active Substance: MELATONIN
     Route: 048
     Dates: start: 20250312, end: 20250315
  12. MELATONIN [Suspect]
     Active Substance: MELATONIN
     Dates: start: 20250312, end: 20250315
  13. CEFTRIAXONE [Suspect]
     Active Substance: CEFTRIAXONE
     Indication: Pyelonephritis acute
     Dates: start: 20250218, end: 20250224
  14. CEFTRIAXONE [Suspect]
     Active Substance: CEFTRIAXONE
     Route: 065
     Dates: start: 20250218, end: 20250224
  15. CEFTRIAXONE [Suspect]
     Active Substance: CEFTRIAXONE
     Route: 065
     Dates: start: 20250218, end: 20250224
  16. CEFTRIAXONE [Suspect]
     Active Substance: CEFTRIAXONE
     Dates: start: 20250218, end: 20250224
  17. ALPRAZOLAM [Suspect]
     Active Substance: ALPRAZOLAM
     Indication: Anxiety
     Dosage: 0.25 MILLIGRAM, QD
     Dates: start: 20250301
  18. ALPRAZOLAM [Suspect]
     Active Substance: ALPRAZOLAM
     Dosage: 0.25 MILLIGRAM, QD
     Route: 048
     Dates: start: 20250301
  19. ALPRAZOLAM [Suspect]
     Active Substance: ALPRAZOLAM
     Dosage: 0.25 MILLIGRAM, QD
     Route: 048
     Dates: start: 20250301
  20. ALPRAZOLAM [Suspect]
     Active Substance: ALPRAZOLAM
     Dosage: 0.25 MILLIGRAM, QD
     Dates: start: 20250301
  21. CALCIPARINE [Suspect]
     Active Substance: HEPARIN CALCIUM
     Indication: Thrombosis prophylaxis
     Dosage: 25000 INTERNATIONAL UNIT, QD
     Dates: start: 20250225
  22. CALCIPARINE [Suspect]
     Active Substance: HEPARIN CALCIUM
     Dosage: 25000 INTERNATIONAL UNIT, QD
     Route: 058
     Dates: start: 20250225
  23. CALCIPARINE [Suspect]
     Active Substance: HEPARIN CALCIUM
     Dosage: 25000 INTERNATIONAL UNIT, QD
     Route: 058
     Dates: start: 20250225
  24. CALCIPARINE [Suspect]
     Active Substance: HEPARIN CALCIUM
     Dosage: 25000 INTERNATIONAL UNIT, QD
     Dates: start: 20250225
  25. HYDROXOCOBALAMIN [Suspect]
     Active Substance: HYDROXOCOBALAMIN
     Indication: Vitamin B12 deficiency
     Dates: start: 20250314, end: 20250314
  26. HYDROXOCOBALAMIN [Suspect]
     Active Substance: HYDROXOCOBALAMIN
     Route: 065
     Dates: start: 20250314, end: 20250314
  27. HYDROXOCOBALAMIN [Suspect]
     Active Substance: HYDROXOCOBALAMIN
     Route: 065
     Dates: start: 20250314, end: 20250314
  28. HYDROXOCOBALAMIN [Suspect]
     Active Substance: HYDROXOCOBALAMIN
     Dates: start: 20250314, end: 20250314
  29. CYANOCOBALAMIN [Suspect]
     Active Substance: CYANOCOBALAMIN
     Indication: Vitamin B12 deficiency
     Dates: start: 20250220, end: 20250220
  30. CYANOCOBALAMIN [Suspect]
     Active Substance: CYANOCOBALAMIN
     Route: 065
     Dates: start: 20250220, end: 20250220
  31. CYANOCOBALAMIN [Suspect]
     Active Substance: CYANOCOBALAMIN
     Route: 065
     Dates: start: 20250220, end: 20250220
  32. CYANOCOBALAMIN [Suspect]
     Active Substance: CYANOCOBALAMIN
     Dates: start: 20250220, end: 20250220
  33. ACEBUTOLOL HYDROCHLORIDE [Concomitant]
     Active Substance: ACEBUTOLOL HYDROCHLORIDE
  34. ACEBUTOLOL HYDROCHLORIDE [Concomitant]
     Active Substance: ACEBUTOLOL HYDROCHLORIDE
     Route: 065
  35. ACEBUTOLOL HYDROCHLORIDE [Concomitant]
     Active Substance: ACEBUTOLOL HYDROCHLORIDE
     Route: 065
  36. ACEBUTOLOL HYDROCHLORIDE [Concomitant]
     Active Substance: ACEBUTOLOL HYDROCHLORIDE

REACTIONS (1)
  - Dermatitis exfoliative generalised [Not Recovered/Not Resolved]

NARRATIVE: CASE EVENT DATE: 20250315
